FAERS Safety Report 20369758 (Version 1)
Quarter: 2022Q1

REPORT INFORMATION
  Report Type: Spontaneous
  Country: NL (occurrence: NL)
  Receive Date: 20220124
  Receipt Date: 20220124
  Transmission Date: 20220424
  Serious: Yes (Other)
  Sender: FDA-Public Use
  Company Number: NL-CELLTRION HEALTHCARE HUNGARY KFT-2022NL000305

PATIENT

DRUGS (6)
  1. DOCETAXEL [Suspect]
     Active Substance: DOCETAXEL
     Indication: HER2 positive salivary gland cancer
     Dosage: 225 MILLIGRAM/KILOGRAM, QW(6 DOSAGES (75MG/KG, EVERY 3 WEEKS)  )
  2. TRASTUZUMAB [Suspect]
     Active Substance: TRASTUZUMAB
     Indication: HER2 positive salivary gland cancer
     Dosage: 1800 MILLIGRAM, QW(600MG, EVERY 3 WEEKS)
     Route: 058
  3. TRASTUZUMAB [Suspect]
     Active Substance: TRASTUZUMAB
     Dosage: 24 MILLIGRAM/KILOGRAM, QW(8 MG/KG, EVERY 3 WEEKS  )
     Route: 042
  4. TRASTUZUMAB [Suspect]
     Active Substance: TRASTUZUMAB
     Dosage: 18 MILLIGRAM/KILOGRAM, QW(6 MG/KG, EVERY 3 WEEKS (SUBSEQUENT DOSAGES)
     Route: 042
  5. PERTUZUMAB [Suspect]
     Active Substance: PERTUZUMAB
     Indication: HER2 positive salivary gland cancer
     Dosage: 2520 MILLIGRAM, QW(840 MG, EVERY 3 WEEKS
     Route: 042
  6. PERTUZUMAB [Suspect]
     Active Substance: PERTUZUMAB
     Dosage: 1260 MILLIGRAM, QW(420 MG, EVERY 3 WEEKS (SUBSEQUENT DOSAGES)  )
     Route: 042

REACTIONS (4)
  - Salivary gland cancer [Unknown]
  - Disease progression [Unknown]
  - Off label use [Unknown]
  - Therapy partial responder [Unknown]
